FAERS Safety Report 8999929 (Version 1)
Quarter: 2013Q1

REPORT INFORMATION
  Report Type: Spontaneous
  Country: CN (occurrence: CN)
  Receive Date: 20130102
  Receipt Date: 20130102
  Transmission Date: 20140127
  Serious: Yes (Other)
  Sender: FDA-Public Use
  Company Number: CN-PFIZER INC-2012330214

PATIENT
  Sex: 0

DRUGS (1)
  1. TYGACIL [Suspect]
     Dosage: UNK

REACTIONS (1)
  - Dermatitis bullous [Unknown]
